FAERS Safety Report 11915845 (Version 1)
Quarter: 2016Q1

REPORT INFORMATION
  Report Type: Spontaneous
  Country: US (occurrence: None)
  Receive Date: 20160113
  Receipt Date: 20160113
  Transmission Date: 20160526
  Serious: Yes (Disabling)
  Sender: FDA-Public Use
  Company Number: None

PATIENT
  Age: 42 Year
  Sex: Female
  Weight: 58.06 kg

DRUGS (18)
  1. LEXAPRO [Concomitant]
     Active Substance: ESCITALOPRAM OXALATE
  2. CALCIUM CITRATE [Concomitant]
     Active Substance: CALCIUM CITRATE
  3. UP AND UP SINUS 12 HOUR [Suspect]
     Active Substance: PSEUDOEPHEDRINE HYDROCHLORIDE
     Indication: DYSPNOEA
     Route: 048
     Dates: start: 20160106, end: 20160106
  4. VITAMIN C [Concomitant]
     Active Substance: ASCORBIC ACID
  5. ALBUTEROL. [Concomitant]
     Active Substance: ALBUTEROL
  6. MAGNESIUM CITRATE. [Concomitant]
     Active Substance: MAGNESIUM CITRATE
  7. FLORASTOR (PROBIOTIC) [Concomitant]
  8. UP AND UP SINUS 12 HOUR [Suspect]
     Active Substance: PSEUDOEPHEDRINE HYDROCHLORIDE
     Indication: PAIN
     Route: 048
     Dates: start: 20160106, end: 20160106
  9. VIT. D [Concomitant]
  10. VIT. B6 [Concomitant]
  11. THROAT COAT. SLIPPERY ELM LOZENGES [Concomitant]
  12. BENADRYL [Concomitant]
     Active Substance: DIPHENHYDRAMINE HYDROCHLORIDE
  13. VIT. A [Concomitant]
  14. MAGNESIUM MALATE [Concomitant]
  15. RICOLA LOZENGES [Concomitant]
  16. UP AND UP SINUS 12 HOUR [Suspect]
     Active Substance: PSEUDOEPHEDRINE HYDROCHLORIDE
     Indication: SINUS CONGESTION
     Route: 048
     Dates: start: 20160106, end: 20160106
  17. SYMBICORT [Concomitant]
     Active Substance: BUDESONIDE\FORMOTEROL FUMARATE DIHYDRATE
  18. HERBAL TEAS (MINT, GREEN) [Concomitant]

REACTIONS (2)
  - Abdominal pain [None]
  - Abdominal pain upper [None]

NARRATIVE: CASE EVENT DATE: 20160106
